FAERS Safety Report 7235729-3 (Version None)
Quarter: 2011Q1

REPORT INFORMATION
  Report Type: 
  Country: None (occurrence: None)
  Receive Date: 20110120
  Receipt Date: 20110110
  Transmission Date: 20110831
  Serious: Yes (Hospitalization)
  Sender: FDA-Public Use
  Company Number: PHHO2011FR00794

PATIENT
  Sex: Female

DRUGS (2)
  1. MYCOPHENOLATE MOFETIL [Concomitant]
     Indication: RENAL TRANSPLANT
     Dosage: 500 MG, BID
     Route: 048
     Dates: start: 20100812
  2. CERTICAN [Suspect]
     Indication: RENAL TRANSPLANT
     Dosage: 1.85 MG, BID
     Route: 048
     Dates: start: 20100923

REACTIONS (5)
  - HYPONATRAEMIA [None]
  - ARTHRALGIA [None]
  - CYTOLYTIC HEPATITIS [None]
  - HYPOKALAEMIA [None]
  - PYREXIA [None]
